FAERS Safety Report 19204122 (Version 2)
Quarter: 2021Q2

REPORT INFORMATION
  Report Type: Spontaneous
  Country: PL (occurrence: PL)
  Receive Date: 20210503
  Receipt Date: 20210615
  Transmission Date: 20210717
  Serious: Yes (Hospitalization, Other)
  Sender: FDA-Public Use
  Company Number: PL-AUROBINDO-AUR-APL-2021-016000

PATIENT
  Age: 73 Year
  Sex: Female

DRUGS (13)
  1. LAMOTRIGINE. [Interacting]
     Active Substance: LAMOTRIGINE
     Indication: BIPOLAR DISORDER
     Dosage: 200 MILLIGRAM, ONCE A DAY (IN THE MORNING )
     Route: 065
  2. FLUOXETINE [Interacting]
     Active Substance: FLUOXETINE HYDROCHLORIDE
     Dosage: 20 MILLIGRAM, ONCE A DAY (WHEN CARBAMAZEPINE WAS ADDED TO THE TREATMENT)
     Route: 065
  3. CARBAMAZEPINE. [Interacting]
     Active Substance: CARBAMAZEPINE
     Indication: BIPOLAR I DISORDER
     Dosage: 450 MILLIGRAM (AFTER A WEEK)
     Route: 065
  4. FLUOXETINE [Suspect]
     Active Substance: FLUOXETINE HYDROCHLORIDE
     Indication: BIPOLAR DISORDER
     Dosage: 40 MILLIGRAM, ONCE A DAY (FOR A LONG TIME)
     Route: 065
  5. LAMOTRIGINE. [Interacting]
     Active Substance: LAMOTRIGINE
     Dosage: 100 MILLIGRAM, ONCE A DAY
     Route: 065
  6. CARBAMAZEPINE. [Interacting]
     Active Substance: CARBAMAZEPINE
     Indication: BIPOLAR DISORDER
     Dosage: 225 MILLIGRAM (INITIALLY)
     Route: 065
  7. DIAZEPAM. [Concomitant]
     Active Substance: DIAZEPAM
     Dosage: 15 MILLIGRAM (DOSE OF 3 X 5 MG WAS TEMPORARILY ADDED TO TREATMENT)
     Route: 065
  8. FLUOXETINE [Interacting]
     Active Substance: FLUOXETINE HYDROCHLORIDE
     Dosage: 150 MILLIGRAM, CONTROLLED RELEASE (CR) IN THE EVENING
     Route: 065
  9. TRAZODONE [Interacting]
     Active Substance: TRAZODONE HYDROCHLORIDE
     Indication: SLEEP DISORDER
     Dosage: 75 MILLIGRAM
     Route: 065
  10. TRAZODONE [Interacting]
     Active Substance: TRAZODONE HYDROCHLORIDE
     Indication: BIPOLAR DISORDER
     Dosage: 150 MILLIGRAM, ONCE A DAY (CONTROLLED?RELEASE IN TH EVENING)
     Route: 065
  11. HYDROXYZINE [Suspect]
     Active Substance: HYDROXYZINE HYDROCHLORIDE
     Indication: ANXIETY
     Dosage: UNK, AS NECESSARY
     Route: 065
  12. DIAZEPAM. [Concomitant]
     Active Substance: DIAZEPAM
     Indication: PRODUCT USED FOR UNKNOWN INDICATION
     Dosage: UNK (AT A DOSE OF 3 X 5 MG)
     Route: 065
  13. LAMOTRIGINE. [Interacting]
     Active Substance: LAMOTRIGINE
     Dosage: 50 MILLIGRAM, ONCE A DAY
     Route: 065

REACTIONS (19)
  - Drug interaction [Recovered/Resolved]
  - Oral disorder [Recovered/Resolved]
  - Skin lesion [Recovered/Resolved]
  - Stevens-Johnson syndrome [Recovered/Resolved]
  - Lip erythema [Recovered/Resolved]
  - Vulval disorder [Recovered/Resolved]
  - Drug level increased [Unknown]
  - Genital rash [Recovered/Resolved]
  - Condition aggravated [Recovered/Resolved]
  - Rash pruritic [Recovered/Resolved]
  - Blister [Recovered/Resolved]
  - Sleep disorder [Recovered/Resolved]
  - Intentional product use issue [Unknown]
  - Therapeutic product effect incomplete [Unknown]
  - Intentional product misuse [Unknown]
  - Genital lesion [Recovered/Resolved]
  - Rash [Recovered/Resolved]
  - Rash erythematous [Recovered/Resolved]
  - Pruritus [Recovered/Resolved]
